FAERS Safety Report 9255635 (Version 1)
Quarter: 2013Q2

REPORT INFORMATION
  Report Type: Spontaneous
  Country: JP (occurrence: JP)
  Receive Date: 20130425
  Receipt Date: 20130425
  Transmission Date: 20140414
  Serious: Yes (Death)
  Sender: FDA-Public Use
  Company Number: JP-GLAXOSMITHKLINE-B0886024A

PATIENT
  Age: 9 Decade
  Sex: 0

DRUGS (2)
  1. PAXIL [Suspect]
     Indication: DEPRESSION
     Dosage: 20MG PER DAY
     Route: 048
     Dates: start: 2003, end: 2003
  2. UNKNOWN DRUG [Concomitant]
     Route: 065

REACTIONS (2)
  - Arrhythmia [Fatal]
  - Tachycardia [Unknown]
